FAERS Safety Report 10227927 (Version 2)
Quarter: 2014Q2

REPORT INFORMATION
  Report Type: Report from Study
  Country: US (occurrence: US)
  Receive Date: 20140610
  Receipt Date: 20140610
  Transmission Date: 20141212
  Serious: Yes (Other)
  Sender: FDA-Public Use
  Company Number: US-BAYER-2014-075350

PATIENT
  Age: 62 Year
  Sex: Female

DRUGS (3)
  1. BETASERON [Suspect]
     Indication: RELAPSING-REMITTING MULTIPLE SCLEROSIS
     Dosage: UNK
     Dates: start: 20140425, end: 20140519
  2. DIMETHYL FUMARATE [Concomitant]
     Dosage: UNK
     Dates: end: 201405
  3. PROVIGIL [Concomitant]
     Dosage: UNK UNK, QD

REACTIONS (7)
  - Pneumonia [Recovering/Resolving]
  - Respiratory tract congestion [Recovering/Resolving]
  - Wheezing [Recovering/Resolving]
  - Productive cough [Recovering/Resolving]
  - Fatigue [Recovering/Resolving]
  - Musculoskeletal stiffness [Recovered/Resolved]
  - Activities of daily living impaired [Recovered/Resolved]
